FAERS Safety Report 5291115-7 (Version None)
Quarter: 2007Q2

REPORT INFORMATION
  Report Type: 
  Country: None (occurrence: None)
  Receive Date: 20070402
  Receipt Date: 20070321
  Transmission Date: 20071010
  Serious: Yes (Other)
  Sender: FDA-Public Use
  Company Number: 2007-00810

PATIENT
  Sex: Male
  Weight: 73 kg

DRUGS (2)
  1. VELCADE [Suspect]
     Indication: MULTIPLE MYELOMA
     Dosage: UNK, UNK, INTRAVENOUS
     Route: 042
     Dates: start: 20061002, end: 20070319
  2. MELPHALAN (MELPHALAN) VIAL [Suspect]
     Indication: MULTIPLE MYELOMA
     Dosage: UNK, UNK, INTRAVENOUS
     Route: 042
     Dates: start: 20061003, end: 20070319

REACTIONS (1)
  - ERYTHEMA MULTIFORME [None]
